FAERS Safety Report 7282788-8 (Version None)
Quarter: 2011Q1

REPORT INFORMATION
  Report Type: 
  Country: None (occurrence: None)
  Receive Date: 20110128
  Receipt Date: 20110120
  Transmission Date: 20110831
  Serious: Yes (Death)
  Sender: FDA-Public Use
  Company Number: 1000018296

PATIENT
  Age: 31 Year
  Sex: Male

DRUGS (2)
  1. COCAINE (COCAINE) [Suspect]
  2. DILTIAZEM HCL [Suspect]

REACTIONS (3)
  - INTENTIONAL DRUG MISUSE [None]
  - RESPIRATORY ARREST [None]
  - CARDIAC ARREST [None]
